FAERS Safety Report 21029755 (Version 2)
Quarter: 2022Q3

REPORT INFORMATION
  Report Type: Spontaneous
  Country: CA (occurrence: CA)
  Receive Date: 20220630
  Receipt Date: 20220718
  Transmission Date: 20221026
  Serious: Yes (Death, Disabling, Other)
  Sender: FDA-Public Use
  Company Number: CA-SA-SAC20220630000461

PATIENT
  Age: 63 Year
  Sex: Male

DRUGS (1)
  1. MYOZYME [Suspect]
     Active Substance: ALGLUCOSIDASE ALFA
     Indication: Glycogen storage disease type II
     Dosage: 1400 MG, QOW
     Route: 041
     Dates: start: 202012, end: 20220621

REACTIONS (2)
  - Death [Fatal]
  - Wheelchair user [Unknown]

NARRATIVE: CASE EVENT DATE: 20220625
